FAERS Safety Report 8244535-2 (Version None)
Quarter: 2012Q1

REPORT INFORMATION
  Report Type: 
  Country: None (occurrence: None)
  Receive Date: 20120329
  Receipt Date: 20120320
  Transmission Date: 20120608
  Serious: Yes (Hospitalization, Other)
  Sender: FDA-Public Use
  Company Number: US-ALEXION-A201200347

PATIENT
  Sex: Female
  Weight: 72.5 kg

DRUGS (16)
  1. COLACE [Concomitant]
     Dosage: UNK
  2. ASPIRIN [Concomitant]
     Dosage: UNK
     Route: 048
  3. PHENERGAN HCL [Concomitant]
     Dosage: UNK
     Route: 030
  4. VANCOMYCIN HCL [Concomitant]
     Dosage: UNK
     Route: 048
  5. BENADRYL [Concomitant]
     Dosage: UNK
     Route: 048
  6. MULTI-VITAMIN [Concomitant]
     Dosage: UNK
     Route: 048
  7. SOLIRIS [Suspect]
     Indication: PAROXYSMAL NOCTURNAL HAEMOGLOBINURIA
     Dosage: 900 MG, Q2W
     Route: 042
     Dates: start: 20120201
  8. LOVENOX [Concomitant]
     Dosage: 100 MG, QD
     Route: 058
  9. ALBUTEROL [Concomitant]
     Dosage: UNK
  10. DILAUDID [Concomitant]
     Dosage: UNK
     Route: 047
  11. FOLIC ACID [Concomitant]
     Dosage: UNK
     Route: 048
  12. SPIRIVA [Concomitant]
     Dosage: UNK
     Route: 048
  13. ARANESP [Concomitant]
     Dosage: UNK
  14. ADVAIR DISKUS 100/50 [Concomitant]
     Dosage: UNK
  15. PAXIL [Concomitant]
     Dosage: UNK
     Route: 048
  16. RESTORIL [Concomitant]
     Dosage: UNK
     Route: 048

REACTIONS (7)
  - CONTUSION [None]
  - MUSCULOSKELETAL PAIN [None]
  - PNEUMONIA [None]
  - SERUM FERRITIN INCREASED [None]
  - INSOMNIA [None]
  - BACTERAEMIA [None]
  - DEVICE RELATED INFECTION [None]
